FAERS Safety Report 6006771-5 (Version None)
Quarter: 2008Q4

REPORT INFORMATION
  Report Type: 
  Country: None (occurrence: None)
  Receive Date: 20081217
  Receipt Date: 20081208
  Transmission Date: 20090506
  Serious: Yes (Other)
  Sender: FDA-Public Use
  Company Number: PHHY2008BR31048

PATIENT
  Age: 71 Year
  Sex: Female

DRUGS (3)
  1. DIOVAN HCT [Suspect]
     Dosage: 1 DF, QD
     Route: 048
  2. SELOZOK [Concomitant]
  3. ADALAT [Concomitant]

REACTIONS (1)
  - CEREBRAL ISCHAEMIA [None]
